FAERS Safety Report 8790063 (Version 2)
Quarter: 2019Q1

REPORT INFORMATION
  Report Type: Spontaneous
  Country: DE (occurrence: DE)
  Receive Date: 20120917
  Receipt Date: 20190211
  Transmission Date: 20190418
  Serious: Yes (Congenital Anomaly)
  Sender: FDA-Public Use
  Company Number: DE-SANOFI-AVENTIS-2012SA065845

PATIENT

DRUGS (19)
  1. EZETIMIBE/SIMVASTATIN [Suspect]
     Active Substance: EZETIMIBE\SIMVASTATIN
     Indication: HYPERCHOLESTEROLAEMIA
     Dosage: 40 [MG/D ] / 10 [MG/D ]
     Route: 064
     Dates: start: 20111214, end: 20120320
  2. TORASEMIDE [Suspect]
     Active Substance: TORSEMIDE
     Indication: NEPHROTIC SYNDROME
     Dosage: 100 MG, QD
     Route: 064
     Dates: start: 20111214, end: 20120320
  3. ACETYLSALICYLIC ACID [Concomitant]
     Active Substance: ASPIRIN
     Indication: VENA CAVA THROMBOSIS
     Dosage: 100 [MG/D ]
     Route: 064
     Dates: start: 20111214, end: 20120320
  4. CYTOTEC [Concomitant]
     Active Substance: MISOPROSTOL
     Indication: ABORTION INDUCED
     Dosage: UNK UNK, UNK
     Route: 064
     Dates: start: 20120320, end: 20120320
  5. TACROLIMUS. [Suspect]
     Active Substance: TACROLIMUS
     Indication: SYSTEMIC LUPUS ERYTHEMATOSUS
     Dosage: 6 MG,UNK
     Route: 064
  6. ALISKIREN [Concomitant]
     Active Substance: ALISKIREN
     Indication: HYPERTENSION
     Dosage: 300 MG, UNK
     Route: 064
     Dates: start: 20111214, end: 20120117
  7. RITUXIMAB. [Suspect]
     Active Substance: RITUXIMAB
     Indication: SYSTEMIC LUPUS ERYTHEMATOSUS
     Dosage: LAST TIME IN DECEMBER 2011: PRE OR PERICONCEPTIONAL
     Route: 064
  8. MIFEGYNE [Concomitant]
     Active Substance: MIFEPRISTONE
     Indication: ABORTION INDUCED
     Dosage: UNK UNK, UNK
     Route: 064
     Dates: start: 20120320, end: 20120320
  9. ALBUTEROL [SALBUTAMOL] [Concomitant]
     Active Substance: ALBUTEROL
     Indication: ASTHMA
     Dosage: UNK, PRN
     Route: 064
  10. CYCLOPHOSPHAMIDE. [Concomitant]
     Active Substance: CYCLOPHOSPHAMIDE
     Indication: SYSTEMIC LUPUS ERYTHEMATOSUS
     Dosage: 3000 [MG CUMULATIVE ]/ APRIL -AUGUST 2011
     Route: 064
     Dates: start: 201104, end: 201108
  11. PANTOPRAZOLE [Concomitant]
     Active Substance: PANTOPRAZOLE
     Indication: GASTRITIS PROPHYLAXIS
     Dosage: 40 MG, QD
     Route: 064
     Dates: start: 20111214, end: 20120320
  12. ADVAGRAF [Suspect]
     Active Substance: TACROLIMUS
     Indication: SYSTEMIC LUPUS ERYTHEMATOSUS
     Dosage: 6 [MG/D ]
     Route: 064
     Dates: start: 20111214, end: 20120320
  13. CLEXANE [Concomitant]
     Active Substance: ENOXAPARIN SODIUM
     Indication: PULMONARY EMBOLISM
     Dosage: 200 [MG/D (2X100) ]
     Route: 064
     Dates: start: 20111214, end: 20120320
  14. PREDNISOLONE. [Concomitant]
     Active Substance: PREDNISOLONE
     Dosage: 10 MG MILLIGRAM(S) EVERY 2 DAY
     Route: 064
     Dates: start: 20111214, end: 20120320
  15. NOVAMINSULFON [Concomitant]
     Active Substance: METAMIZOLE
     Indication: PAIN
     Dosage: UNK UNK, UNK
     Route: 064
  16. XARELTO [Concomitant]
     Active Substance: RIVAROXABAN
     Indication: VENA CAVA THROMBOSIS
     Dosage: NOT KNOWN, IF TREATMENT STARTED BEFORE OR AFTER MISSED ABORTION.
     Route: 064
  17. DELIX (RAMIPRIL) [Suspect]
     Active Substance: RAMIPRIL
     Indication: NEPHROTIC SYNDROME
     Dosage: 20 [MG/D ]
     Route: 064
     Dates: start: 20111214, end: 20120320
  18. QUENSYL [Suspect]
     Active Substance: HYDROXYCHLOROQUINE
     Indication: SYSTEMIC LUPUS ERYTHEMATOSUS
     Dosage: UNK UNK,UNK
     Route: 064
     Dates: start: 20111214, end: 20120320
  19. SALBUTAMOL [Concomitant]
     Active Substance: ALBUTEROL
     Indication: ASTHMA
     Dosage: UNK UNK, UNK
     Route: 064

REACTIONS (3)
  - Ventricular septal defect [Not Recovered/Not Resolved]
  - Truncus arteriosus persistent [Not Recovered/Not Resolved]
  - Foetal exposure during pregnancy [Unknown]
